FAERS Safety Report 9106951 (Version 3)
Quarter: 2013Q3

REPORT INFORMATION
  Report Type: Report from Study
  Country: BR (occurrence: BR)
  Receive Date: 20130221
  Receipt Date: 20130806
  Transmission Date: 20140515
  Serious: Yes (Hospitalization, Other)
  Sender: FDA-Public Use
  Company Number: BR-ROCHE-1129129

PATIENT
  Sex: Female
  Weight: 66 kg

DRUGS (4)
  1. ACTEMRA [Suspect]
     Indication: RHEUMATOID ARTHRITIS
     Route: 042
     Dates: start: 20120501, end: 20120701
  2. ACTEMRA [Suspect]
     Route: 042
     Dates: start: 20130111
  3. ARAVA [Concomitant]
     Route: 065
  4. PURAN T4 [Concomitant]
     Route: 065

REACTIONS (10)
  - Appendicitis [Recovered/Resolved with Sequelae]
  - Depression [Recovered/Resolved]
  - Immunodeficiency [Recovering/Resolving]
  - Impaired healing [Not Recovered/Not Resolved]
  - Local swelling [Not Recovered/Not Resolved]
  - Weight increased [Recovering/Resolving]
  - Insomnia [Recovering/Resolving]
  - Anxiety [Recovering/Resolving]
  - Hernia [Not Recovered/Not Resolved]
  - Influenza [Not Recovered/Not Resolved]
